FAERS Safety Report 14699683 (Version 1)
Quarter: 2018Q1

REPORT INFORMATION
  Report Type: Spontaneous
  Country: US (occurrence: US)
  Receive Date: 20180329
  Receipt Date: 20180329
  Transmission Date: 20180509
  Serious: Yes (Hospitalization, Other)
  Sender: FDA-Public Use
  Company Number: None

PATIENT
  Age: 21 Year
  Sex: Female
  Weight: 90.6 kg

DRUGS (1)
  1. KETAMINE [Suspect]
     Active Substance: KETAMINE
     Dosage: ?          OTHER FREQUENCY:ONCE;?
     Route: 030

REACTIONS (6)
  - Hypoxia [None]
  - Increased bronchial secretion [None]
  - Somnolence [None]
  - Poisoning [None]
  - Respiratory rate decreased [None]
  - Aggression [None]

NARRATIVE: CASE EVENT DATE: 20180325
